FAERS Safety Report 4853156-0 (Version None)
Quarter: 2005Q4

REPORT INFORMATION
  Report Type: 
  Country: None (occurrence: None)
  Receive Date: 20051212
  Receipt Date: 20051202
  Transmission Date: 20060501
  Serious: Yes (Other)
  Sender: FDA-Public Use
  Company Number: 2005-12-0141

PATIENT
  Age: 53 Year
  Sex: Male

DRUGS (8)
  1. PEG-INTRON [Suspect]
     Indication: HEPATITIS C
     Dosage: SUBCUTANEOUS
     Route: 058
     Dates: start: 20031001, end: 20040601
  2. RIBAVIRIN [Suspect]
     Indication: HEPATITIS C
     Dosage: ORAL
     Route: 048
     Dates: start: 20031020, end: 20040601
  3. PREDNISONE TAB [Concomitant]
  4. LABETALOL [Concomitant]
  5. FUROSEMIDE [Concomitant]
  6. AMLODIPINE [Concomitant]
  7. PANTOPRAZOLE SODIUM [Concomitant]
  8. HYDROCHLOROTHIAZIDE [Concomitant]

REACTIONS (9)
  - ACTIVATED PARTIAL THROMBOPLASTIN TIME PROLONGED [None]
  - BLOOD CREATININE INCREASED [None]
  - CONTUSION [None]
  - CRYOGLOBULINAEMIA [None]
  - ECCHYMOSIS [None]
  - HAEMATOCRIT DECREASED [None]
  - PIGMENTATION DISORDER [None]
  - PURPURA [None]
  - SCLERAL HAEMORRHAGE [None]
